FAERS Safety Report 9063972 (Version 1)
Quarter: 2013Q1

REPORT INFORMATION
  Report Type: Spontaneous
  Country: FR (occurrence: FR)
  Receive Date: 20130213
  Receipt Date: 20130213
  Transmission Date: 20140127
  Serious: Yes (Hospitalization)
  Sender: FDA-Public Use
  Company Number: FR-ROCHE-1189957

PATIENT
  Age: 44 None
  Sex: Male

DRUGS (3)
  1. ROACTEMRA [Suspect]
     Indication: RHEUMATOID ARTHRITIS
     Route: 042
     Dates: start: 20100904
  2. ROACTEMRA [Suspect]
     Route: 042
     Dates: start: 20121026
  3. BI-PROFENID [Suspect]
     Indication: PAIN
     Route: 048

REACTIONS (2)
  - Oesophageal ulcer [Not Recovered/Not Resolved]
  - Gastritis [Not Recovered/Not Resolved]
